FAERS Safety Report 5475133-1 (Version None)
Quarter: 2007Q4

REPORT INFORMATION
  Report Type: 
  Country: None (occurrence: None)
  Receive Date: 20071002
  Receipt Date: 20070904
  Transmission Date: 20080405
  Serious: Yes (Hospitalization, Disabling, Other)
  Sender: FDA-Public Use
  Company Number: US-ROXANE LABORATORIES, INC-2007-BP-05184RO

PATIENT
  Sex: Female
  Weight: 84 kg

DRUGS (3)
  1. LITHIUM CARBONATE TABLETS USP, 300 MG [Suspect]
     Indication: BIPOLAR DISORDER
     Route: 048
  2. REMERON [Concomitant]
     Indication: INSOMNIA
     Dosage: 15 MG AS NEEDED FOR SLEEP
     Route: 048
  3. SYNTHROID [Concomitant]
     Indication: THYROID DISORDER

REACTIONS (9)
  - ABORTION SPONTANEOUS [None]
  - HEADACHE [None]
  - HYPOTHYROIDISM [None]
  - LOSS OF EMPLOYMENT [None]
  - MUSCLE SPASMS [None]
  - MYALGIA [None]
  - NERVE INJURY [None]
  - SUICIDE ATTEMPT [None]
  - SWELLING [None]
